FAERS Safety Report 12287468 (Version 1)
Quarter: 2016Q2

REPORT INFORMATION
  Report Type: Not Available
  Country: TN (occurrence: TN)
  Receive Date: 20160420
  Receipt Date: 20160420
  Transmission Date: 20160815
  Serious: Yes (Death)
  Sender: FDA-Public Use
  Company Number: TN-ANIPHARMA-2016-TN-000001

PATIENT
  Age: 35 Year
  Sex: Female

DRUGS (1)
  1. LITHIUM CARBONATE (NON-SPECIFIC) [Suspect]
     Active Substance: LITHIUM
     Dosage: 500 MG TWICE DAILY

REACTIONS (3)
  - Hypovolaemic shock [Fatal]
  - Acute kidney injury [Fatal]
  - Hydrocephalus [Fatal]
